FAERS Safety Report 24846494 (Version 1)
Quarter: 2025Q1

REPORT INFORMATION
  Report Type: Spontaneous
  Country: GB (occurrence: GB)
  Receive Date: 20250115
  Receipt Date: 20250115
  Transmission Date: 20250409
  Serious: Yes (Hospitalization, Other)
  Sender: ELI LILLY AND COMPANY
  Company Number: None

PATIENT
  Age: 27 Year
  Sex: Female

DRUGS (3)
  1. GALCANEZUMAB [Suspect]
     Active Substance: GALCANEZUMAB
     Indication: Migraine
     Dosage: 120 MG, MONTHLY (1/M)
     Route: 065
     Dates: start: 20241104
  2. GALCANEZUMAB [Suspect]
     Active Substance: GALCANEZUMAB
     Dosage: 120 MG, MONTHLY (1/M)
     Route: 065
  3. LANSOPRAZOLE [Concomitant]
     Active Substance: LANSOPRAZOLE
     Indication: Gastritis

REACTIONS (5)
  - Dysphagia [Unknown]
  - Oropharyngeal pain [Unknown]
  - Tonsillar hypertrophy [Unknown]
  - Dyspnoea [Unknown]
  - Pharyngeal swelling [Not Recovered/Not Resolved]

NARRATIVE: CASE EVENT DATE: 20241106
